FAERS Safety Report 5893590-3 (Version None)
Quarter: 2008Q3

REPORT INFORMATION
  Report Type: 
  Country: None (occurrence: None)
  Receive Date: 20080918
  Receipt Date: 20080901
  Transmission Date: 20090109
  Serious: Yes (Hospitalization)
  Sender: FDA-Public Use
  Company Number: 6045382

PATIENT
  Age: 85 Year
  Sex: Male

DRUGS (3)
  1. BISOPROLOL FUMARATE [Suspect]
     Indication: DRUG USE FOR UNKNOWN INDICATION
     Dosage: 1 DOSAGE FORMS (1 DOSAGE FORMS, 1 IN 1 D), ORAL
     Route: 048
     Dates: start: 20080602, end: 20080615
  2. CORDARONE [Suspect]
     Indication: DRUG USE FOR UNKNOWN INDICATION
     Dosage: 1 DOSAGE FORMS (1 DOSAGE FORMS, 1 IN 1 D), ORAL
     Route: 048
     Dates: start: 20080602, end: 20080615
  3. NEXIUM [Concomitant]

REACTIONS (14)
  - ANTIMITOCHONDRIAL ANTIBODY POSITIVE [None]
  - ANTINUCLEAR ANTIBODY INCREASED [None]
  - ASCITES [None]
  - AUTOANTIBODY POSITIVE [None]
  - CARDIAC FAILURE [None]
  - CARDIOPULMONARY FAILURE [None]
  - CYTOLYTIC HEPATITIS [None]
  - GENERAL PHYSICAL HEALTH DETERIORATION [None]
  - HEPATIC ENCEPHALOPATHY [None]
  - MULTI-ORGAN FAILURE [None]
  - OESOPHAGITIS [None]
  - PLEURAL EFFUSION [None]
  - RENAL ATROPHY [None]
  - RENAL CYST [None]
